FAERS Safety Report 15042304 (Version 3)
Quarter: 2018Q2

REPORT INFORMATION
  Report Type: Spontaneous
  Country: FR (occurrence: FR)
  Receive Date: 20180621
  Receipt Date: 20180621
  Transmission Date: 20180711
  Serious: Yes (Other)
  Sender: FDA-Public Use
  Company Number: PHHY2018FR026199

PATIENT
  Age: 17 Year
  Sex: Male

DRUGS (10)
  1. PEGASPARGASE [Interacting]
     Active Substance: PEGASPARGASE
     Indication: ACUTE LYMPHOCYTIC LEUKAEMIA
     Dosage: 4800 IU, QD
     Route: 042
     Dates: start: 20180305, end: 20180319
  2. CERUBIDINE [Interacting]
     Active Substance: DAUNORUBICIN HYDROCHLORIDE
     Indication: ACUTE LYMPHOCYTIC LEUKAEMIA
     Dosage: 77.5 MG, QD
     Route: 042
     Dates: start: 20180301
  3. BACTRIM [Concomitant]
     Active Substance: SULFAMETHOXAZOLE\TRIMETHOPRIM
     Indication: INFECTION
     Route: 065
  4. HYDROCORTISONE. [Interacting]
     Active Substance: HYDROCORTISONE
     Indication: ACUTE LYMPHOCYTIC LEUKAEMIA
     Dosage: 15 MG, UNK
     Route: 037
     Dates: start: 20180306, end: 20180319
  5. ORACILLINE [Concomitant]
     Active Substance: PENICILLIN V
     Indication: SPLENOMEGALY
     Route: 065
  6. METHOTREXATE. [Interacting]
     Active Substance: METHOTREXATE
     Indication: ACUTE LYMPHOCYTIC LEUKAEMIA
     Dosage: 15 MG, QD
     Route: 037
     Dates: start: 20180223, end: 20180319
  7. LOVENOX [Concomitant]
     Active Substance: ENOXAPARIN SODIUM
     Indication: SPLENOMEGALY
  8. ARACYTINE [Interacting]
     Active Substance: CYTARABINE
     Indication: ACUTE LYMPHOCYTIC LEUKAEMIA
     Dosage: 30 MG, QD
     Route: 037
     Dates: start: 20180306, end: 20180319
  9. PREDNISOLONE. [Suspect]
     Active Substance: PREDNISOLONE
     Indication: ACUTE LYMPHOCYTIC LEUKAEMIA
     Dosage: 120 MG, QD
     Route: 048
     Dates: start: 20180301
  10. VINCRISTINE [Interacting]
     Active Substance: VINCRISTINE
     Indication: ACUTE LYMPHOCYTIC LEUKAEMIA
     Dosage: 2 MG, QD
     Route: 042
     Dates: start: 20180301

REACTIONS (4)
  - Hypofibrinogenaemia [Not Recovered/Not Resolved]
  - Potentiating drug interaction [Not Recovered/Not Resolved]
  - Prothrombin level abnormal [Not Recovered/Not Resolved]
  - International normalised ratio increased [Not Recovered/Not Resolved]

NARRATIVE: CASE EVENT DATE: 20180319
